FAERS Safety Report 4391122-2 (Version None)
Quarter: 2004Q3

REPORT INFORMATION
  Report Type: 
  Country: None (occurrence: None)
  Receive Date: 20040707
  Receipt Date: 20040702
  Transmission Date: 20050211
  Serious: Yes (Hospitalization)
  Sender: FDA-Public Use
  Company Number: CH-ROCHE-373106

PATIENT
  Age: 32 Year
  Sex: Male

DRUGS (8)
  1. CELLCEPT [Suspect]
     Route: 048
     Dates: start: 20031106
  2. PROGRAF [Suspect]
     Route: 048
     Dates: start: 20031106
  3. WELLVONE [Concomitant]
     Indication: INFECTION PROPHYLAXIS
     Route: 048
     Dates: start: 20040215
  4. ACTRAPID [Concomitant]
     Route: 058
  5. EPHYNAL [Concomitant]
     Dosage: (300 ML)
     Route: 048
  6. FOLVITE [Concomitant]
     Route: 048
  7. VITAMIN A [Concomitant]
     Indication: VITAMIN A DEFICIENCY
     Route: 048
  8. CREON [Concomitant]
     Indication: PANCREATIC DISORDER
     Route: 048

REACTIONS (3)
  - DEEP VEIN THROMBOSIS [None]
  - PHLEBITIS [None]
  - THROMBOSIS [None]
